FAERS Safety Report 19083123 (Version 1)
Quarter: 2021Q1

REPORT INFORMATION
  Report Type: Spontaneous
  Country: US (occurrence: US)
  Receive Date: 20210331
  Receipt Date: 20210331
  Transmission Date: 20210420
  Serious: No
  Sender: FDA-Public Use
  Company Number: None

PATIENT
  Age: 31 Year
  Sex: Female

DRUGS (1)
  1. AMBRISENTAN 5MG TABLETS 30/BO: 5 MG [Suspect]
     Active Substance: AMBRISENTAN
     Indication: PULMONARY ARTERIAL HYPERTENSION
     Route: 048
     Dates: start: 20201029, end: 20210308

REACTIONS (4)
  - Fatigue [None]
  - Pyrexia [None]
  - Headache [None]
  - Skin burning sensation [None]

NARRATIVE: CASE EVENT DATE: 20210308
